FAERS Safety Report 12386979 (Version 2)
Quarter: 2016Q2

REPORT INFORMATION
  Report Type: Report from Study
  Country: RO (occurrence: RO)
  Receive Date: 20160519
  Receipt Date: 20160628
  Transmission Date: 20160815
  Serious: Yes (Hospitalization)
  Sender: FDA-Public Use
  Company Number: RO-ABBVIE-16P-135-1627778-00

PATIENT
  Age: 79 Year
  Sex: Male

DRUGS (7)
  1. EXVIERA [Suspect]
     Active Substance: DASABUVIR
     Indication: HEPATIC CIRRHOSIS
  2. VIEKIRAX [Suspect]
     Active Substance: OMBITASVIR\PARITAPREVIR\RITONAVIR
     Indication: HEPATIC CIRRHOSIS
  3. EXVIERA [Suspect]
     Active Substance: DASABUVIR
     Indication: HEPATITIS C
     Dosage: 1-0-1
     Route: 048
     Dates: start: 20160406
  4. RIBAVIRIN. [Suspect]
     Active Substance: RIBAVIRIN
     Indication: HEPATITIS C
     Route: 065
     Dates: start: 20160406
  5. RIBAVIRIN. [Suspect]
     Active Substance: RIBAVIRIN
     Indication: HEPATIC CIRRHOSIS
  6. DIUREX [Concomitant]
     Active Substance: AMILORIDE HYDROCHLORIDE\HYDROCHLOROTHIAZIDE
     Indication: DIURETIC THERAPY
     Route: 048
  7. VIEKIRAX [Suspect]
     Active Substance: OMBITASVIR\PARITAPREVIR\RITONAVIR
     Indication: HEPATITIS C
     Dosage: 2-0-0
     Route: 048
     Dates: start: 20160406

REACTIONS (11)
  - Pruritus [Unknown]
  - Headache [Unknown]
  - Dyspnoea [Not Recovered/Not Resolved]
  - Oedema peripheral [Unknown]
  - Nausea [Unknown]
  - Anaemia [Recovering/Resolving]
  - Vomiting [Not Recovered/Not Resolved]
  - Asthenia [Unknown]
  - Cardiac failure [Unknown]
  - Viral infection [Unknown]
  - Abdominal distension [Recovering/Resolving]

NARRATIVE: CASE EVENT DATE: 20160426
